FAERS Safety Report 13777019 (Version 2)
Quarter: 2017Q3

REPORT INFORMATION
  Report Type: Spontaneous
  Country: US (occurrence: US)
  Receive Date: 20170721
  Receipt Date: 20170919
  Transmission Date: 20171127
  Serious: Yes (Other)
  Sender: FDA-Public Use
  Company Number: US-BAYER-2017-139631

PATIENT
  Age: 32 Year
  Sex: Female

DRUGS (2)
  1. MIRENA [Suspect]
     Active Substance: LEVONORGESTREL
     Indication: CONTRACEPTION
     Dosage: 20 MCG/24HR, CONT
     Route: 015
     Dates: start: 20170714
  2. SUBOXONE [Concomitant]
     Active Substance: BUPRENORPHINE HYDROCHLORIDE\NALOXONE HYDROCHLORIDE
     Indication: DRUG USE DISORDER

REACTIONS (1)
  - Post procedural haemorrhage [Recovered/Resolved]

NARRATIVE: CASE EVENT DATE: 20170714
